FAERS Safety Report 20343362 (Version 2)
Quarter: 2022Q3

REPORT INFORMATION
  Report Type: Report from Study
  Country: US (occurrence: None)
  Receive Date: 20220117
  Receipt Date: 20220830
  Transmission Date: 20221026
  Serious: Yes (Hospitalization)
  Sender: FDA-Public Use
  Company Number: US-ROCHE-2999872

PATIENT
  Age: 63 Year
  Sex: Male
  Weight: 92.162 kg

DRUGS (18)
  1. DORNASE ALFA [Suspect]
     Active Substance: DORNASE ALFA
     Indication: COVID-19
     Dates: start: 20210929, end: 20211026
  2. ACETAMINOPHEN [Concomitant]
     Active Substance: ACETAMINOPHEN
     Dates: start: 20220101, end: 20220108
  3. ASPIRIN [Concomitant]
     Active Substance: ASPIRIN
     Dates: start: 20220108
  4. ATORVASTATIN [Concomitant]
     Active Substance: ATORVASTATIN
     Dates: start: 20220105, end: 20220107
  5. CARVEDILOL [Concomitant]
     Active Substance: CARVEDILOL
     Dates: start: 20220105, end: 20220108
  6. DEXTROSE [Concomitant]
     Active Substance: DEXTROSE
     Dates: start: 20220106
  7. GABAPENTIN [Concomitant]
     Active Substance: GABAPENTIN
     Dates: start: 20220105, end: 20220108
  8. HEPARIN [Concomitant]
     Active Substance: HEPARIN SODIUM
     Dates: start: 20220106, end: 20220107
  9. HYDROMORPHONE [Concomitant]
     Active Substance: HYDROMORPHONE
     Dates: start: 20220105, end: 20220106
  10. INSULIN NOS [Concomitant]
     Active Substance: INSULIN NOS
     Dates: start: 20220108
  11. IOHEXOL [Concomitant]
     Active Substance: IOHEXOL
     Dates: start: 20220105
  12. LACTATED RINGERS SOLUTION [Concomitant]
     Active Substance: CALCIUM CHLORIDE\POTASSIUM CHLORIDE\SODIUM CHLORIDE\SODIUM LACTATE
     Dates: start: 20220105, end: 20220107
  13. LORAZEPAM [Concomitant]
     Active Substance: LORAZEPAM
     Dates: start: 20220106
  14. MORPHINE [Concomitant]
     Active Substance: MORPHINE
     Dates: start: 20220105
  15. OMEPRAZOLE [Concomitant]
     Active Substance: OMEPRAZOLE
     Dates: start: 20220106
  16. ONDANSETRON [Concomitant]
     Active Substance: ONDANSETRON
     Dates: start: 20220105
  17. OXYCODONE [Concomitant]
     Active Substance: OXYCODONE
     Dates: start: 20220105, end: 20220106
  18. TRAZODONE [Concomitant]
     Active Substance: TRAZODONE HYDROCHLORIDE
     Dates: start: 20220106, end: 20220107

REACTIONS (1)
  - Cholecystitis acute [Recovered/Resolved]

NARRATIVE: CASE EVENT DATE: 20211013
